FAERS Safety Report 14405465 (Version 2)
Quarter: 2019Q1

REPORT INFORMATION
  Report Type: Spontaneous
  Country: US (occurrence: US)
  Receive Date: 20180118
  Receipt Date: 20190117
  Transmission Date: 20190417
  Serious: No
  Sender: FDA-Public Use
  Company Number: US-PFIZER INC-2018020616

PATIENT
  Age: 7 Year
  Sex: Male

DRUGS (2)
  1. GENOTROPIN [Suspect]
     Active Substance: SOMATROPIN
     Dosage: UNK
  2. GENOTROPIN [Suspect]
     Active Substance: SOMATROPIN
     Indication: BLOOD GROWTH HORMONE
     Dosage: 14 MG, DAILY
     Dates: start: 20121113, end: 201711

REACTIONS (4)
  - Pain in extremity [Unknown]
  - Incorrect dose administered [Unknown]
  - Sleep disorder [Unknown]
  - Blood urea nitrogen/creatinine ratio increased [Unknown]
